FAERS Safety Report 11078396 (Version 3)
Quarter: 2015Q3

REPORT INFORMATION
  Report Type: Spontaneous
  Country: US (occurrence: US)
  Receive Date: 20150430
  Receipt Date: 20150723
  Transmission Date: 20151125
  Serious: Yes (Other)
  Sender: FDA-Public Use
  Company Number: US-009507513-1504USA021217

PATIENT
  Age: 28 Year
  Sex: Female
  Weight: 131.97 kg

DRUGS (3)
  1. NEXPLANON [Suspect]
     Active Substance: ETONOGESTREL
     Dosage: 68 MG/ ONE ROD, EVERY THREE YEARS; IN LEFT ARM
     Route: 065
     Dates: start: 20150316, end: 20150422
  2. NEXPLANON [Suspect]
     Active Substance: ETONOGESTREL
     Dosage: INSERTED IN RIGHT ARM
     Route: 059
     Dates: start: 20150422
  3. NEXPLANON [Suspect]
     Active Substance: ETONOGESTREL
     Indication: CONTRACEPTION
     Dosage: IN THE LEFT ARM
     Route: 059
     Dates: start: 201212, end: 20150316

REACTIONS (5)
  - Discomfort [Not Recovered/Not Resolved]
  - Contusion [Recovered/Resolved]
  - Pain [Recovered/Resolved]
  - Device dislocation [Recovered/Resolved]
  - Medical device complication [Recovered/Resolved]

NARRATIVE: CASE EVENT DATE: 2015
